FAERS Safety Report 5501475-7 (Version None)
Quarter: 2007Q4

REPORT INFORMATION
  Report Type: 
  Country: None (occurrence: None)
  Receive Date: 20071019
  Receipt Date: 20070808
  Transmission Date: 20080405
  Serious: Yes (Other)
  Sender: FDA-Public Use
  Company Number: HQWYE518110AUG07

PATIENT
  Age: 86 Year
  Sex: Female
  Weight: 58.11 kg

DRUGS (6)
  1. ADVIL PM [Suspect]
     Indication: INSOMNIA
     Dosage: 2 CAPLETS AS NEEDED, ORAL
     Route: 048
     Dates: start: 20070805, end: 20070805
  2. ADVIL PM [Suspect]
     Indication: PAIN
     Dosage: 2 CAPLETS AS NEEDED, ORAL
     Route: 048
     Dates: start: 20070805, end: 20070805
  3. ADVIL PM [Suspect]
     Indication: INSOMNIA
     Dosage: 2 CAPLETS AS NEEDED, ORAL
     Route: 048
     Dates: start: 20070807
  4. ADVIL PM [Suspect]
     Indication: PAIN
     Dosage: 2 CAPLETS AS NEEDED, ORAL
     Route: 048
     Dates: start: 20070807
  5. LIPITOR [Concomitant]
  6. LISINOPRIL [Concomitant]

REACTIONS (2)
  - DRUG INEFFECTIVE [None]
  - FEELING JITTERY [None]
